FAERS Safety Report 9848846 (Version 2)
Quarter: 2014Q2

REPORT INFORMATION
  Report Type: Spontaneous
  Country: IT (occurrence: IT)
  Receive Date: 20140128
  Receipt Date: 20140424
  Transmission Date: 20141212
  Serious: Yes (Other)
  Sender: FDA-Public Use
  Company Number: IT-MYLANLABS-2014S1001161

PATIENT
  Age: 67 Year
  Sex: Male

DRUGS (3)
  1. SILDENAFIL [Suspect]
     Indication: ERECTILE DYSFUNCTION
     Dosage: 1 DF TOTAL
     Route: 048
     Dates: start: 20131208, end: 20131208
  2. TORVAST [Concomitant]
     Indication: PRODUCT USED FOR UNKNOWN INDICATION
     Route: 048
  3. BRILIQUE [Concomitant]
     Indication: PRODUCT USED FOR UNKNOWN INDICATION
     Route: 048

REACTIONS (1)
  - Syncope [Recovering/Resolving]
